FAERS Safety Report 7465079-1 (Version None)
Quarter: 2011Q2

REPORT INFORMATION
  Report Type: 
  Country: None (occurrence: None)
  Receive Date: 20110428
  Receipt Date: 20110414
  Transmission Date: 20111010
  Serious: Yes (Death)
  Sender: FDA-Public Use
  Company Number: JP-20110013

PATIENT
  Age: 75 Year
  Sex: Male

DRUGS (2)
  1. LIPIODOL ULTRA FLUIDE) (ETHIODIZED OIL) [Suspect]
     Indication: THERAPEUTIC EMBOLISATION
     Dosage: INTRA-ARTERIAL
     Route: 013
     Dates: start: 20090601, end: 20090601
  2. LIPIODOL ULTRA FLUIDE) (ETHIODIZED OIL) [Suspect]
     Indication: THERAPEUTIC EMBOLISATION
     Dosage: INTRA-ARTERIAL
     Route: 013
     Dates: start: 20090729, end: 20090729

REACTIONS (7)
  - LIVER ABSCESS [None]
  - NEOPLASM MALIGNANT [None]
  - ANGINA PECTORIS [None]
  - HEPATIC FUNCTION ABNORMAL [None]
  - OFF LABEL USE [None]
  - ASPARTATE AMINOTRANSFERASE INCREASED [None]
  - ALANINE AMINOTRANSFERASE INCREASED [None]
